FAERS Safety Report 19673156 (Version 1)
Quarter: 2021Q3

REPORT INFORMATION
  Report Type: Spontaneous
  Country: GB (occurrence: GB)
  Receive Date: 20210809
  Receipt Date: 20210809
  Transmission Date: 20211014
  Serious: Yes (Other)
  Sender: FDA-Public Use
  Company Number: GB-ACCORD-234422

PATIENT
  Sex: Female
  Weight: 58 kg

DRUGS (2)
  1. CARBOPLATIN. [Suspect]
     Active Substance: CARBOPLATIN
     Indication: PLEURAL MESOTHELIOMA
     Dosage: COURSE COMPLETE, 6 CYCLES
     Route: 065
     Dates: start: 20190130, end: 20200110
  2. PEMETREXED. [Suspect]
     Active Substance: PEMETREXED
     Indication: PLEURAL MESOTHELIOMA
     Route: 065
     Dates: start: 20190830, end: 20200110

REACTIONS (2)
  - Intentional product use issue [Unknown]
  - Malignant neoplasm progression [Unknown]
